FAERS Safety Report 8920900 (Version 1)
Quarter: 2012Q4

REPORT INFORMATION
  Report Type: 
  Country: MX (occurrence: MX)
  Receive Date: 20121121
  Receipt Date: 20121121
  Transmission Date: 20130627
  Serious: Yes (Death)
  Sender: FDA-Public Use
  Company Number: MX-GLAXOSMITHKLINE-A1002536A

PATIENT
  Age: 77 Year
  Sex: Male

DRUGS (2)
  1. SERETIDE DISKUS [Suspect]
     Indication: LUNG DISORDER
     Route: 055
  2. SPIRIVA [Concomitant]

REACTIONS (1)
  - Chronic obstructive pulmonary disease [Fatal]
